FAERS Safety Report 18549162 (Version 2)
Quarter: 2020Q4

REPORT INFORMATION
  Report Type: Report from Study
  Country: None (occurrence: US)
  Receive Date: 20201126
  Receipt Date: 20201127
  Transmission Date: 20210114
  Serious: Yes (Other)
  Sender: FDA-Public Use
  Company Number: US-ABBVIE-20K-163-3575916-00

PATIENT
  Sex: Female
  Weight: 86.2 kg

DRUGS (3)
  1. VENCLEXTA [Suspect]
     Active Substance: VENETOCLAX
     Indication: ACUTE MYELOID LEUKAEMIA
     Dosage: 2 TABLETS A DAY
     Route: 048
     Dates: start: 202003, end: 2020
  2. DECITABINE. [Concomitant]
     Active Substance: DECITABINE
     Indication: ACUTE MYELOID LEUKAEMIA
     Dosage: DAYS 1 THROUGH 10 EVERY 28 DAYS
     Route: 042
     Dates: start: 202003
  3. VENCLEXTA [Suspect]
     Active Substance: VENETOCLAX
     Dosage: REDUCED TO 1 TABLET A DAY?TAKE 1 TABLET BY MOUTH DAILY
     Route: 048
     Dates: start: 2020

REACTIONS (3)
  - Off label use [Unknown]
  - Incorrect dose administered [Unknown]
  - Cholelithiasis [Unknown]

NARRATIVE: CASE EVENT DATE: 2020
